FAERS Safety Report 10008980 (Version 2)
Quarter: 2014Q1

REPORT INFORMATION
  Report Type: Spontaneous
  Country: US (occurrence: US)
  Receive Date: 20140313
  Receipt Date: 20140313
  Transmission Date: 20141002
  Serious: No
  Sender: FDA-Public Use
  Company Number: US-INCYTE CORPORATION-2012IN000847

PATIENT
  Sex: Female

DRUGS (15)
  1. JAKAFI [Suspect]
     Indication: MYELOFIBROSIS
     Dosage: 20 MG, BID
     Route: 048
     Dates: start: 20120206
  2. JAKAFI [Suspect]
     Dosage: 20 MG, QD
     Route: 048
  3. SYNTHROID [Concomitant]
     Dosage: 112 MCG, QD
  4. AMLODIPINE [Concomitant]
     Dosage: 5 MG, QD
  5. HYDROCHLOROTHIAZIDE [Concomitant]
     Dosage: 25 MG, QD
  6. TOPROL XL [Concomitant]
     Dosage: 12.5 MG, QD
  7. ALLOPURINOL [Concomitant]
     Dosage: 1300 MG, QD
  8. WARFARIN [Concomitant]
     Dosage: 5 MG, QD
  9. OMEPRAZOLE [Concomitant]
     Dosage: 20 MG, QD
  10. LISINOPRIL [Concomitant]
     Dosage: 40 MG, QD
  11. HYDROCODONE [Concomitant]
     Dosage: 7.5/325 MG, PRN
  12. ASPIRIN [Concomitant]
     Dosage: 81 MG, QD
  13. FISH OIL [Concomitant]
  14. STOOL SOFTENER [Concomitant]
  15. CALCIUM SUPPLEMENT [Concomitant]

REACTIONS (4)
  - Fatigue [Unknown]
  - Nausea [Unknown]
  - Muscle spasms [Unknown]
  - Burning sensation [Unknown]
